FAERS Safety Report 5465545-4 (Version None)
Quarter: 2007Q3

REPORT INFORMATION
  Report Type: 
  Country: None (occurrence: None)
  Receive Date: 20070924
  Receipt Date: 19990115
  Transmission Date: 20080115
  Serious: Yes (Hospitalization)
  Sender: FDA-Public Use
  Company Number: DE-PFIZER INC-2006117688

PATIENT
  Sex: Male

DRUGS (1)
  1. IRINOTECAN HCL [Suspect]
     Indication: COLON CANCER
     Dosage: DAILY DOSE:700MG
     Route: 042
     Dates: start: 19980820, end: 19980820

REACTIONS (1)
  - HYPERAMMONAEMIA [None]
